FAERS Safety Report 8589195-6 (Version None)
Quarter: 2012Q3

REPORT INFORMATION
  Report Type: 
  Country: None (occurrence: None)
  Receive Date: 20120813
  Receipt Date: 20120803
  Transmission Date: 20120928
  Serious: Yes (Death)
  Sender: FDA-Public Use
  Company Number: US-MYLANLABS-2011S1002608

PATIENT
  Age: 46 Year
  Sex: Male
  Weight: 100.02 kg

DRUGS (7)
  1. ZOLOFT [Concomitant]
  2. FENTANYL CITRATE [Suspect]
     Indication: PAIN
     Route: 062
     Dates: end: 20090206
  3. OXYMORPHONE HYDROCHLORIDE [Suspect]
  4. OXYCODONE HCL [Suspect]
  5. METOPROLOL [Concomitant]
  6. MOBIC [Concomitant]
  7. VALIUM [Concomitant]

REACTIONS (1)
  - TOXICITY TO VARIOUS AGENTS [None]
